FAERS Safety Report 5391579-4 (Version None)
Quarter: 2007Q3

REPORT INFORMATION
  Report Type: 
  Country: None (occurrence: None)
  Receive Date: 20070719
  Receipt Date: 20070706
  Transmission Date: 20080115
  Serious: Yes (Hospitalization, Other)
  Sender: FDA-Public Use
  Company Number: IE-GENENTECH-239401

PATIENT
  Sex: Female
  Weight: 62.8 kg

DRUGS (7)
  1. HERCEPTIN [Suspect]
     Indication: BREAST CANCER
     Dosage: 6 MG/KG, Q3W
     Route: 042
     Dates: start: 20070119
  2. CAPECITABINE [Suspect]
     Indication: BREAST CANCER
     Dosage: 500 MG, Q2W
     Route: 048
     Dates: start: 20070119
  3. CAPECITABINE [Suspect]
     Dates: start: 20070413
  4. CAPECITABINE [Suspect]
     Dosage: 750 MG, UNK
     Dates: start: 20070507
  5. NYSTATIN [Concomitant]
     Indication: DRUG USE FOR UNKNOWN INDICATION
     Dates: start: 20070119
  6. DOMPERIDONE [Concomitant]
     Indication: DRUG USE FOR UNKNOWN INDICATION
     Dates: start: 20070119
  7. LOPERAMIDE HCL [Concomitant]
     Indication: DRUG USE FOR UNKNOWN INDICATION
     Dosage: UNK, UNK
     Dates: start: 20070119

REACTIONS (2)
  - PALMAR-PLANTAR ERYTHRODYSAESTHESIA SYNDROME [None]
  - SKIN FISSURES [None]
